FAERS Safety Report 6830189-6 (Version None)
Quarter: 2010Q3

REPORT INFORMATION
  Report Type: 
  Country: None (occurrence: None)
  Receive Date: 20100711
  Receipt Date: 20100610
  Transmission Date: 20110219
  Serious: No
  Sender: FDA-Public Use
  Company Number: US-ALLERGAN-1007613US

PATIENT
  Sex: Female

DRUGS (3)
  1. LATISSE [Suspect]
     Indication: GROWTH OF EYELASHES
     Dosage: UNK
  2. THYROID MEDICATION [Concomitant]
     Indication: THYROID DISORDER
     Dosage: UNK
  3. MENOPAUSAL THERAPY [Concomitant]
     Indication: MENOPAUSE
     Dosage: UNK

REACTIONS (1)
  - MADAROSIS [None]
